FAERS Safety Report 4699794-X (Version None)
Quarter: 2005Q2

REPORT INFORMATION
  Report Type: 
  Country: None (occurrence: None)
  Receive Date: 20050623
  Receipt Date: 20041208
  Transmission Date: 20051028
  Serious: Yes (Other)
  Sender: FDA-Public Use
  Company Number: 2005016348

PATIENT
  Age: 79 Year
  Sex: Female
  Weight: 56.246 kg

DRUGS (13)
  1. DETROL LA [Suspect]
     Indication: POLLAKIURIA
     Dosage: 4 MG (4 MG, 1 IN 1 D), ORAL
     Route: 048
     Dates: start: 20000101
  2. FASLODEX [Suspect]
     Indication: BREAST CANCER METASTATIC
     Dosage: (1 IN 1 M), INTRAMUSCULAR
     Route: 030
     Dates: start: 20041010
  3. CALCIUM (CALCIUM) [Concomitant]
  4. FUROSEMIDE [Concomitant]
  5. KLOR-CON [Concomitant]
  6. PROCRIT [Concomitant]
  7. NEXIUM [Concomitant]
  8. MEGACE [Concomitant]
  9. LIPITOR [Concomitant]
  10. ASPIRIN [Concomitant]
  11. ANASTROZOLE (ANASTROZOLE) [Concomitant]
  12. TAMOXIFEN CITRATE [Concomitant]
  13. DITROPAN XL [Concomitant]

REACTIONS (12)
  - APHASIA [None]
  - APTYALISM [None]
  - COLON CANCER [None]
  - DRY EYE [None]
  - HEPATIC NEOPLASM MALIGNANT [None]
  - HERPES SIMPLEX [None]
  - LIP DRY [None]
  - NASAL DRYNESS [None]
  - NEOPLASM MALIGNANT [None]
  - OSTEOARTHRITIS [None]
  - SINUS DISORDER [None]
  - SWELLING FACE [None]
